FAERS Safety Report 11617459 (Version 1)
Quarter: 2015Q4

REPORT INFORMATION
  Report Type: Report from Study
  Country: BR (occurrence: BR)
  Receive Date: 20151009
  Receipt Date: 20151009
  Transmission Date: 20160304
  Serious: Yes (Other)
  Sender: FDA-Public Use
  Company Number: BR-ABBVIE-15P-020-1477805-00

PATIENT
  Age: 6 Month
  Sex: Female
  Weight: 42 kg

DRUGS (3)
  1. RITALIN [Concomitant]
     Active Substance: METHYLPHENIDATE HYDROCHLORIDE
     Indication: DISTURBANCE IN ATTENTION
     Route: 048
     Dates: start: 201509
  2. DEPAKOTE [Suspect]
     Active Substance: DIVALPROEX SODIUM
     Indication: SEIZURE
     Route: 065
     Dates: start: 200601
  3. DEPAKOTE ER [Suspect]
     Active Substance: DIVALPROEX SODIUM
     Indication: SEIZURE
     Route: 048
     Dates: start: 2010

REACTIONS (5)
  - Drug ineffective [Unknown]
  - Seizure [Unknown]
  - Drug administered to patient of inappropriate age [Unknown]
  - Drug administered to patient of inappropriate age [Unknown]
  - Hydrocephalus [Unknown]

NARRATIVE: CASE EVENT DATE: 200601
